FAERS Safety Report 4990862-1 (Version None)
Quarter: 2006Q1

REPORT INFORMATION
  Report Type: 
  Country: None (occurrence: None)
  Receive Date: 20060314
  Receipt Date: 20060125
  Transmission Date: 20060701
  Serious: No
  Sender: FDA-Public Use
  Company Number: 2005-01977

PATIENT
  Age: 60 Year
  Sex: Male
  Weight: 98.9 kg

DRUGS (3)
  1. VELCADE [Suspect]
     Indication: NON-SMALL CELL LUNG CANCER
     Dosage: 1.50 MG/M2, IV BOLUS
     Route: 040
     Dates: start: 20050801, end: 20050901
  2. MEDROL ACETATE [Concomitant]
  3. LEVAQUIN [Concomitant]

REACTIONS (3)
  - NEUROPATHY PERIPHERAL [None]
  - PARAESTHESIA [None]
  - TESTICULAR PAIN [None]
